FAERS Safety Report 20113806 (Version 1)
Quarter: 2021Q4

REPORT INFORMATION
  Report Type: Spontaneous
  Country: US (occurrence: US)
  Receive Date: 20211125
  Receipt Date: 20211125
  Transmission Date: 20220303
  Serious: Yes (Other)
  Sender: FDA-Public Use
  Company Number: US-SANOFI-00858509

PATIENT
  Sex: Female

DRUGS (1)
  1. DULCOLAX NOS [Suspect]
     Active Substance: BISACODYL OR DOCUSATE SODIUM

REACTIONS (5)
  - Rectal haemorrhage [Unknown]
  - Feeling hot [Unknown]
  - Genital tract inflammation [Unknown]
  - Genital erythema [Unknown]
  - Abdominal distension [Unknown]
